FAERS Safety Report 4943811-6 (Version None)
Quarter: 2006Q1

REPORT INFORMATION
  Report Type: 
  Country: None (occurrence: None)
  Receive Date: 20060314
  Receipt Date: 20050923
  Transmission Date: 20060701
  Serious: Yes (Hospitalization)
  Sender: FDA-Public Use
  Company Number: US-MERCK-0509USA03602

PATIENT
  Age: 59 Year
  Sex: Female
  Weight: 51 kg

DRUGS (8)
  1. VIOXX [Suspect]
     Indication: ARTHRITIS
     Route: 048
     Dates: start: 19991101, end: 20040101
  2. AVAPRO [Concomitant]
     Indication: HYPERTENSION
     Route: 065
     Dates: start: 19990101, end: 20030101
  3. DIOVAN [Concomitant]
     Indication: HYPERTENSION
     Route: 065
     Dates: start: 19990101, end: 20030101
  4. TOPROL-XL [Concomitant]
     Route: 065
     Dates: start: 19990101
  5. HYDROCHLOROTHIAZIDE [Concomitant]
     Indication: HYPERTENSION
     Route: 065
     Dates: start: 19990101
  6. LIPITOR [Concomitant]
     Indication: BLOOD CHOLESTEROL INCREASED
     Route: 065
     Dates: start: 19990101
  7. PREMARIN [Concomitant]
     Route: 065
  8. TRAZODONE HYDROCHLORIDE [Concomitant]
     Indication: DEPRESSION
     Route: 065
     Dates: start: 19990101

REACTIONS (3)
  - ACUTE MYOCARDIAL INFARCTION [None]
  - DIABETES MELLITUS [None]
  - STRESS [None]
